FAERS Safety Report 14983229 (Version 1)
Quarter: 2018Q2

REPORT INFORMATION
  Report Type: Spontaneous
  Country: US (occurrence: US)
  Receive Date: 20180517
  Receipt Date: 20180517
  Transmission Date: 20180711
  Serious: Yes (Hospitalization)
  Sender: FDA-Public Use
  Company Number: None

PATIENT
  Age: 4 Year
  Sex: Male

DRUGS (1)
  1. NORDITROPIN [Suspect]
     Active Substance: SOMATROPIN
     Indication: HYPOPITUITARISM
     Dosage: ?          OTHER FREQUENCY:6 DAYS PER WEEK;?
     Route: 058
     Dates: start: 20180116

REACTIONS (3)
  - Diarrhoea [None]
  - Abdominal pain upper [None]
  - Retching [None]

NARRATIVE: CASE EVENT DATE: 20180515
